FAERS Safety Report 8374626 (Version 4)
Quarter: 2018Q4

REPORT INFORMATION
  Report Type: Spontaneous
  Country: US (occurrence: US)
  Receive Date: 20120130
  Receipt Date: 20181019
  Transmission Date: 20190205
  Serious: Yes (Other)
  Sender: FDA-Public Use
  Company Number: US-AMGEN-USASP2012005345

PATIENT
  Age: 8 Year
  Sex: Male

DRUGS (1)
  1. NEUPOGEN [Suspect]
     Active Substance: FILGRASTIM
     Indication: PRODUCT USED FOR UNKNOWN INDICATION
     Dosage: UNK UNK, BID
     Route: 064
     Dates: start: 1989, end: 1991

REACTIONS (12)
  - Scleroderma [Unknown]
  - Crohn^s disease [Unknown]
  - Red blood cell abnormality [Unknown]
  - Biopsy oesophagus abnormal [Unknown]
  - Vomiting [Unknown]
  - Platelet count abnormal [Unknown]
  - Meconium aspiration syndrome [Unknown]
  - Biopsy intestine abnormal [Unknown]
  - Mean platelet volume abnormal [Unknown]
  - Immune system disorder [Unknown]
  - Depression suicidal [Unknown]
  - Biopsy stomach abnormal [Unknown]

NARRATIVE: CASE EVENT DATE: 20040104
